FAERS Safety Report 9440922 (Version 2)
Quarter: 2013Q3

REPORT INFORMATION
  Report Type: Spontaneous
  Country: US (occurrence: None)
  Receive Date: 20130801
  Receipt Date: 20130812
  Transmission Date: 20140515
  Serious: Yes (Hospitalization)
  Sender: FDA-Public Use
  Company Number: USA/USA/13/0033553

PATIENT
  Age: 40 Year
  Sex: Male

DRUGS (5)
  1. OMEPRAZOLE DELAYED-RELEASE [Suspect]
     Indication: GASTROOESOPHAGEAL REFLUX DISEASE
     Route: 048
     Dates: start: 201301
  2. MORPHINE [Suspect]
     Indication: GASTROINTESTINAL PAIN
  3. IBUPROFEN (IBUPROFEN) [Concomitant]
  4. TYLENOL (PARACETAMOL) [Concomitant]
  5. ASPIRIN (ACETYLSALICYLIC ACID) [Concomitant]

REACTIONS (4)
  - Gastrooesophageal reflux disease [None]
  - Condition aggravated [None]
  - Drug screen positive [None]
  - Gastrointestinal pain [None]
